FAERS Safety Report 23404303 (Version 3)
Quarter: 2024Q2

REPORT INFORMATION
  Report Type: Spontaneous
  Country: US (occurrence: US)
  Receive Date: 20240116
  Receipt Date: 20240410
  Transmission Date: 20240715
  Serious: No
  Sender: FDA-Public Use
  Company Number: US-GLAXOSMITHKLINE-US2024AMR005905

PATIENT
  Age: 65 Year
  Sex: Female
  Weight: 85.261 kg

DRUGS (2)
  1. ZEJULA [Suspect]
     Active Substance: NIRAPARIB
     Indication: Ovarian cancer
     Dosage: 200 MG, QD
     Route: 048
     Dates: start: 20240103
  2. ZEJULA [Suspect]
     Active Substance: NIRAPARIB
     Dosage: 100 MG, QD (AT BEDTIME)
     Route: 048
     Dates: start: 20240103

REACTIONS (7)
  - Nausea [Unknown]
  - Fatigue [Unknown]
  - Night sweats [Unknown]
  - Illness [Recovered/Resolved]
  - Red blood cell count decreased [Recovered/Resolved]
  - Anaemia [Recovered/Resolved]
  - Stomatitis [Recovered/Resolved]

NARRATIVE: CASE EVENT DATE: 20240101
